FAERS Safety Report 14607519 (Version 1)
Quarter: 2018Q1

REPORT INFORMATION
  Report Type: Spontaneous
  Country: GB (occurrence: GB)
  Receive Date: 20180307
  Receipt Date: 20180307
  Transmission Date: 20180509
  Serious: Yes (Other)
  Sender: FDA-Public Use
  Company Number: GB-TEVA-2018-GB-864365

PATIENT
  Age: 71 Year
  Sex: Male

DRUGS (3)
  1. ELIQUIS [Concomitant]
     Active Substance: APIXABAN
     Indication: ANTICOAGULANT THERAPY
     Dosage: UNKNOWN
     Route: 065
  2. METRONIDAZOLE. [Suspect]
     Active Substance: METRONIDAZOLE
     Indication: NONINFECTIVE GINGIVITIS
     Route: 065
     Dates: start: 2017, end: 2017
  3. METRONIDAZOLE TABLETS 400 MG [Suspect]
     Active Substance: METRONIDAZOLE
     Indication: NONINFECTIVE GINGIVITIS
     Route: 065
     Dates: start: 20171109

REACTIONS (3)
  - Condition aggravated [Recovered/Resolved]
  - Drug ineffective [Recovered/Resolved]
  - Blood glucose fluctuation [Recovered/Resolved]
